FAERS Safety Report 5319769-7 (Version None)
Quarter: 2007Q1

REPORT INFORMATION
  Report Type: 
  Country: None (occurrence: None)
  Receive Date: 20070205
  Receipt Date: 20060510
  Transmission Date: 20070707
  Serious: Yes (Other)
  Sender: FDA-Public Use
  Company Number: PHEH2006US06193

PATIENT
  Sex: Female

DRUGS (1)
  1. RITALIN [Suspect]
     Dates: end: 20040101

REACTIONS (1)
  - BLOOD PRESSURE INCREASED [None]
